FAERS Safety Report 15431130 (Version 7)
Quarter: 2018Q4

REPORT INFORMATION
  Report Type: Report from Study
  Country: DE (occurrence: DE)
  Receive Date: 20180926
  Receipt Date: 20181130
  Transmission Date: 20190204
  Serious: Yes (Hospitalization, Other)
  Sender: FDA-Public Use
  Company Number: DE-SHIRE-DE201835047

PATIENT

DRUGS (5)
  1. TEDUGLUTIDE [Suspect]
     Active Substance: TEDUGLUTIDE
     Dosage: 0.24 ML, EVERY 2 DAYS/EVERY OTHER DAY
     Route: 058
     Dates: start: 20180915, end: 20181007
  2. TEDUGLUTIDE [Suspect]
     Active Substance: TEDUGLUTIDE
     Dosage: UNK
     Route: 058
     Dates: start: 20181029
  3. TEDUGLUTIDE [Suspect]
     Active Substance: TEDUGLUTIDE
     Indication: SHORT-BOWEL SYNDROME
     Dosage: 0.24 ML, 1X/DAY:QD
     Route: 058
     Dates: start: 20180104
  4. TEDUGLUTIDE [Suspect]
     Active Substance: TEDUGLUTIDE
     Dosage: 0.12 ML, 1X/DAY:QD
     Route: 058
     Dates: start: 20101009, end: 20181028
  5. PARACETAMOL [Concomitant]
     Active Substance: ACETAMINOPHEN
     Indication: PAIN

REACTIONS (20)
  - Musculoskeletal pain [Recovering/Resolving]
  - Tension [Unknown]
  - Abdominal fat apron [Unknown]
  - Nausea [Unknown]
  - Intervertebral disc protrusion [Unknown]
  - Gait inability [Not Recovered/Not Resolved]
  - Paresis [Unknown]
  - Dyspnoea [Unknown]
  - Abdominal distension [Recovering/Resolving]
  - Flatulence [Recovering/Resolving]
  - Coccydynia [Not Recovered/Not Resolved]
  - Pancreatitis acute [Unknown]
  - Pancreatitis chronic [Unknown]
  - Frequent bowel movements [Unknown]
  - Abdominal pain [Not Recovered/Not Resolved]
  - Vomiting [Not Recovered/Not Resolved]
  - Eructation [Recovering/Resolving]
  - Fatigue [Unknown]
  - Malaise [Unknown]
  - Back pain [Unknown]

NARRATIVE: CASE EVENT DATE: 20180903
